FAERS Safety Report 5141291-1 (Version None)
Quarter: 2006Q4

REPORT INFORMATION
  Report Type: 
  Country: None (occurrence: None)
  Receive Date: 20061101
  Receipt Date: 20061023
  Transmission Date: 20070319
  Serious: Yes (Other)
  Sender: FDA-Public Use
  Company Number: PHEH2006US13328

PATIENT
  Sex: Male

DRUGS (1)
  1. ELIDEL [Suspect]
     Dosage: UNK, BID
     Route: 061

REACTIONS (1)
  - LYMPHOMA [None]
